FAERS Safety Report 7740483-2 (Version None)
Quarter: 2011Q3

REPORT INFORMATION
  Report Type: 
  Country: None (occurrence: None)
  Receive Date: 20110909
  Receipt Date: 20110830
  Transmission Date: 20111222
  Serious: Yes (Other)
  Sender: FDA-Public Use
  Company Number: KR-BAYER-2011-060076

PATIENT
  Age: 40 Year
  Sex: Female

DRUGS (1)
  1. MIRENA [Suspect]
     Indication: DYSMENORRHOEA
     Dosage: 20 MCG/24HR, CONT
     Route: 015
     Dates: start: 20110514, end: 20110901

REACTIONS (6)
  - VAGINAL HAEMORRHAGE [None]
  - HEADACHE [None]
  - NAUSEA [None]
  - METRORRHAGIA [None]
  - MENORRHAGIA [None]
  - UTERINE MASS [None]
